FAERS Safety Report 9172349 (Version 1)
Quarter: 2013Q1

REPORT INFORMATION
  Report Type: Spontaneous
  Country: US (occurrence: US)
  Receive Date: 20130319
  Receipt Date: 20130319
  Transmission Date: 20140127
  Serious: No
  Sender: FDA-Public Use
  Company Number: US-ASTRAZENECA-2013SE10427

PATIENT
  Age: 47 Year
  Sex: Female
  Weight: 74.8 kg

DRUGS (12)
  1. NEXIUM [Suspect]
     Route: 048
  2. OMEPRAZOLE [Suspect]
     Indication: GASTROOESOPHAGEAL REFLUX DISEASE
     Route: 048
     Dates: start: 2011
  3. ASPIRIN [Suspect]
     Route: 048
  4. PROPANOLOL [Concomitant]
     Indication: HYPERTENSION
  5. ETODOLAC [Concomitant]
     Indication: ARTHRITIS
  6. METHOTREXATE [Concomitant]
     Indication: ARTHRITIS
  7. TRAMADOL [Concomitant]
     Indication: ARTHRALGIA
  8. GABAPENTIN [Concomitant]
     Indication: IRRITABLE BOWEL SYNDROME
  9. AMYTRIPTYLINE [Concomitant]
     Indication: IRRITABLE BOWEL SYNDROME
  10. LIDODERM PATCH [Concomitant]
     Indication: IRRITABLE BOWEL SYNDROME
  11. ACIDOPHILUS [Concomitant]
     Indication: IRRITABLE BOWEL SYNDROME
  12. ALOE VERA [Concomitant]
     Indication: SUPPLEMENTATION THERAPY

REACTIONS (7)
  - Weight decreased [Recovering/Resolving]
  - Dyspepsia [Recovering/Resolving]
  - Irritable bowel syndrome [Not Recovered/Not Resolved]
  - Abdominal pain lower [Recovered/Resolved]
  - Vomiting [Unknown]
  - Nausea [Unknown]
  - Intentional drug misuse [Unknown]
